FAERS Safety Report 8491942 (Version 3)
Quarter: 2013Q2

REPORT INFORMATION
  Report Type: Spontaneous
  Country: US (occurrence: US)
  Receive Date: 20120403
  Receipt Date: 20130627
  Transmission Date: 20140414
  Serious: Yes (Other)
  Sender: FDA-Public Use
  Company Number: CHPA2012US005513

PATIENT
  Age: 72 Year
  Sex: Female

DRUGS (5)
  1. EXCEDRIN MIGRAINE [Suspect]
     Indication: MIGRAINE
     Dosage: RECOMMENDED DOSE, UNK
     Route: 048
  2. EXCEDRIN ES BACK + BODY [Suspect]
     Indication: BACK PAIN
     Dosage: RECOMMENDED DOSE, UNK
     Route: 048
  3. EXCEDRIN TENSION HEADACHE [Suspect]
     Indication: TENSION HEADACHE
     Dosage: RECOMMENDED DOSE, UNK
     Route: 048
  4. ALLERGY MEDICATION [Concomitant]
     Indication: HYPERSENSITIVITY
     Dosage: UNK, ONCE A  MONTH
  5. ZYRTEC [Concomitant]
     Indication: HYPERSENSITIVITY
     Dosage: UNK, QHS

REACTIONS (2)
  - Herpes zoster [Not Recovered/Not Resolved]
  - Foot fracture [Unknown]
